FAERS Safety Report 20807373 (Version 1)
Quarter: 2022Q2

REPORT INFORMATION
  Report Type: Spontaneous
  Country: US (occurrence: US)
  Receive Date: 20220510
  Receipt Date: 20220510
  Transmission Date: 20220721
  Serious: No
  Sender: FDA-Public Use
  Company Number: US-GLENMARK PHARMACEUTICALS-2022GMK071229

PATIENT

DRUGS (1)
  1. FLUCONAZOLE [Suspect]
     Active Substance: FLUCONAZOLE
     Indication: Vulvovaginal mycotic infection
     Dosage: 150 MILLIGRAM, OD
     Route: 048
     Dates: start: 20220309

REACTIONS (2)
  - Headache [Unknown]
  - Product label issue [Unknown]

NARRATIVE: CASE EVENT DATE: 20220311
